FAERS Safety Report 6160505-2 (Version None)
Quarter: 2009Q2

REPORT INFORMATION
  Report Type: 
  Country: None (occurrence: None)
  Receive Date: 20090415
  Receipt Date: 20090415
  Transmission Date: 20091009
  Serious: Yes (Other)
  Sender: FDA-Public Use
  Company Number: None

PATIENT
  Sex: Female
  Weight: 67.27 kg

DRUGS (7)
  1. ARICEPT [Suspect]
     Dosage: 5 MG TABLET 5 MG QD ORAL
     Route: 048
     Dates: start: 20090402, end: 20090414
  2. HYDROCHLOROTHIAZIDE [Concomitant]
  3. LEVOTHYROXINE SODIUM [Concomitant]
  4. LISINOPRIL [Concomitant]
  5. PRAZOSIN HCL [Concomitant]
  6. PREDNISONE [Concomitant]
  7. SIMVASTATIN [Concomitant]

REACTIONS (1)
  - MENTAL STATUS CHANGES [None]
